FAERS Safety Report 25615150 (Version 2)
Quarter: 2025Q4

REPORT INFORMATION
  Report Type: Spontaneous
  Country: US (occurrence: US)
  Receive Date: 20250729
  Receipt Date: 20251026
  Transmission Date: 20260117
  Serious: No
  Sender: SANOFI AVENTIS
  Company Number: US-SA-2025SA218805

PATIENT
  Age: 61 Year
  Sex: Female

DRUGS (1)
  1. KEVZARA [Suspect]
     Active Substance: SARILUMAB
     Dosage: 200 MG, QOW
     Route: 058

REACTIONS (5)
  - Stomatitis [Recovered/Resolved]
  - Lip swelling [Recovered/Resolved]
  - Pruritus [Unknown]
  - Oral pain [Unknown]
  - Headache [Unknown]
